FAERS Safety Report 12916696 (Version 1)
Quarter: 2016Q4

REPORT INFORMATION
  Report Type: Spontaneous
  Country: US (occurrence: US)
  Receive Date: 20161107
  Receipt Date: 20161107
  Transmission Date: 20170207
  Serious: No
  Sender: FDA-Public Use
  Company Number: US-JAZZ-2016-US-017005

PATIENT
  Age: 55 Year
  Sex: Female

DRUGS (19)
  1. TIZANIDINE HCL [Concomitant]
     Active Substance: TIZANIDINE HYDROCHLORIDE
  2. ALDACTAZIDE [Concomitant]
     Active Substance: HYDROCHLOROTHIAZIDE\SPIRONOLACTONE
  3. MACRODANTIN [Concomitant]
     Active Substance: NITROFURANTOIN
  4. HUMALOG [Concomitant]
     Active Substance: INSULIN LISPRO
  5. TRICOR [Concomitant]
     Active Substance: FENOFIBRATE
  6. CYMBALTA [Concomitant]
     Active Substance: DULOXETINE HYDROCHLORIDE
  7. FLONASE [Concomitant]
     Active Substance: FLUTICASONE PROPIONATE
  8. ALLOPURINOL. [Concomitant]
     Active Substance: ALLOPURINOL
  9. ASPIRIN. [Concomitant]
     Active Substance: ASPIRIN
  10. ATORVASTATIN [Concomitant]
     Active Substance: ATORVASTATIN
  11. PRESERVISION AREDS [Concomitant]
     Active Substance: MINERALS\VITAMINS
  12. PROTONIX DR [Concomitant]
  13. XYREM [Suspect]
     Active Substance: SODIUM OXYBATE
     Indication: NARCOLEPSY
     Dosage: 2.5 G, BID
     Route: 048
     Dates: start: 201608
  14. ANUSOL-HC [Concomitant]
  15. IMDUR [Concomitant]
     Active Substance: ISOSORBIDE MONONITRATE
  16. COENZYME Q10 [Concomitant]
     Active Substance: UBIDECARENONE
  17. LIDODERM [Concomitant]
     Active Substance: LIDOCAINE
  18. COREG [Concomitant]
     Active Substance: CARVEDILOL
  19. LYRICA [Concomitant]
     Active Substance: PREGABALIN

REACTIONS (2)
  - Treatment noncompliance [Unknown]
  - Product quality issue [Unknown]

NARRATIVE: CASE EVENT DATE: 201608
